FAERS Safety Report 8317078-5 (Version None)
Quarter: 2012Q2

REPORT INFORMATION
  Report Type: 
  Country: None (occurrence: None)
  Receive Date: 20120425
  Receipt Date: 20120410
  Transmission Date: 20120825
  Serious: Yes (Hospitalization, Other)
  Sender: FDA-Public Use
  Company Number: 2012P1013585

PATIENT
  Age: 2 Year
  Sex: Female

DRUGS (1)
  1. ALDARA [Suspect]
     Indication: MOLLUSCUM CONTAGIOSUM
     Dosage: QD;TOP
     Route: 061

REACTIONS (11)
  - CANDIDIASIS [None]
  - DERMATITIS [None]
  - POSTICTAL STATE [None]
  - DYSURIA [None]
  - GRAND MAL CONVULSION [None]
  - WHITE BLOOD CELL COUNT INCREASED [None]
  - CELLULITIS [None]
  - APPLICATION SITE ERYTHEMA [None]
  - VOMITING [None]
  - SOMNOLENCE [None]
  - PYREXIA [None]
